FAERS Safety Report 6201857-4 (Version None)
Quarter: 2009Q2

REPORT INFORMATION
  Report Type: 
  Country: None (occurrence: None)
  Receive Date: 20090526
  Receipt Date: 20090518
  Transmission Date: 20091009
  Serious: Yes (Hospitalization, Other)
  Sender: FDA-Public Use
  Company Number: IL-ELI_LILLY_AND_COMPANY-IL200905003435

PATIENT
  Sex: Male

DRUGS (1)
  1. HUMALOG MIX 75/25 [Suspect]
     Indication: DIABETES MELLITUS
     Dosage: UNK, UNK
     Dates: start: 20090101

REACTIONS (2)
  - HYPERGLYCAEMIA [None]
  - SYNCOPE [None]
